FAERS Safety Report 25318108 (Version 4)
Quarter: 2025Q3

REPORT INFORMATION
  Report Type: Report from Study
  Country: US (occurrence: US)
  Receive Date: 20250515
  Receipt Date: 20250721
  Transmission Date: 20251021
  Serious: Yes (Life-Threatening, Hospitalization, Other)
  Sender: ABBVIE
  Company Number: US-ABBVIE-6281256

PATIENT
  Age: 68 Year
  Sex: Female

DRUGS (4)
  1. SKYRIZI [Suspect]
     Active Substance: RISANKIZUMAB-RZAA
     Indication: Psoriasis
     Dosage: STRENGTH:150MG/ML
     Route: 058
     Dates: start: 20250411, end: 20250506
  2. SKYRIZI [Suspect]
     Active Substance: RISANKIZUMAB-RZAA
     Route: 058
     Dates: start: 20240112, end: 20250104
  3. RITUXAN [Suspect]
     Active Substance: RITUXIMAB
     Indication: Product used for unknown indication
     Route: 065
  4. REMICADE [Suspect]
     Active Substance: INFLIXIMAB
     Indication: Product used for unknown indication
     Route: 065

REACTIONS (12)
  - Tremor [Unknown]
  - Cardiac disorder [Not Recovered/Not Resolved]
  - Pyrexia [Unknown]
  - Sepsis [Not Recovered/Not Resolved]
  - Pain [Not Recovered/Not Resolved]
  - Hepatic lesion [Unknown]
  - Blood glucose abnormal [Unknown]
  - Fall [Unknown]
  - White blood cell count abnormal [Unknown]
  - Renal impairment [Unknown]
  - Immunodeficiency [Unknown]
  - Hepatic infection [Recovered/Resolved]

NARRATIVE: CASE EVENT DATE: 20250101
